FAERS Safety Report 6927555-7 (Version None)
Quarter: 2010Q3

REPORT INFORMATION
  Report Type: 
  Country: None (occurrence: None)
  Receive Date: 20100816
  Receipt Date: 20100816
  Transmission Date: 20110219
  Serious: No
  Sender: FDA-Public Use
  Company Number: None

PATIENT
  Sex: Female
  Weight: 75.7507 kg

DRUGS (1)
  1. CYMBALTA [Suspect]
     Indication: FIBROMYALGIA
     Dosage: 60MG 1 DAILY (DX DATE 7-7-10) 7-8-9 (JULY 8-9)

REACTIONS (7)
  - ASTHENIA [None]
  - DIARRHOEA [None]
  - NAUSEA [None]
  - PRESYNCOPE [None]
  - PRURITUS [None]
  - RASH [None]
  - RETCHING [None]
